FAERS Safety Report 11077940 (Version 1)
Quarter: 2015Q2

REPORT INFORMATION
  Report Type: Spontaneous
  Country: US (occurrence: None)
  Receive Date: 20150429
  Receipt Date: 20150429
  Transmission Date: 20150821
  Serious: Yes (Death)
  Sender: FDA-Public Use
  Company Number: None

PATIENT
  Age: 68 Year
  Sex: Male
  Weight: 56 kg

DRUGS (3)
  1. CISPLATIN. [Suspect]
     Active Substance: CISPLATIN
     Dates: end: 20141007
  2. CIPRO [Concomitant]
     Active Substance: CIPROFLOXACIN HYDROCHLORIDE
  3. TAXOTERE [Concomitant]
     Active Substance: DOCETAXEL

REACTIONS (4)
  - Drug hypersensitivity [None]
  - Unresponsive to stimuli [None]
  - Dysuria [None]
  - Cardiac arrest [None]

NARRATIVE: CASE EVENT DATE: 20141012
